FAERS Safety Report 6928810-7 (Version None)
Quarter: 2010Q3

REPORT INFORMATION
  Report Type: 
  Country: None (occurrence: None)
  Receive Date: 20100817
  Receipt Date: 20100812
  Transmission Date: 20110219
  Serious: Yes (Hospitalization)
  Sender: FDA-Public Use
  Company Number: US-BRISTOL-MYERS SQUIBB COMPANY-15238652

PATIENT
  Age: 61 Year
  Sex: Male
  Weight: 68 kg

DRUGS (4)
  1. ERBITUX [Suspect]
     Indication: NON-SMALL CELL LUNG CANCER
     Dosage: INTERRUPTED ON 02-AUG-2010 LAST DOSE:26-JUL-2010  400 MG/M2 DAY 1,THEN 250 MG WEEKLY
     Dates: start: 20100621
  2. TAXOL [Suspect]
     Indication: NON-SMALL CELL LUNG CANCER
     Dosage: INTERRUPTED ON 02-AUG-2010 LAST DOSE:26-JUL-2010  45MG/M2 WEEKLY - START DAY 8
     Dates: start: 20100621
  3. CARBOPLATIN [Suspect]
     Indication: NON-SMALL CELL LUNG CANCER
     Dosage: INTERRUPTED ON 02-AUG-2010 LAST DOSE:26-JUL-2010  AUC=WEEKLY - START DAY 8
     Dates: start: 20100621
  4. RADIATION THERAPY [Suspect]
     Indication: NON-SMALL CELL LUNG CANCER
     Dosage: 1DF:48 GY  NO. OF FRACTIONS: 24 LAST DOSE: 02-AUG-2010  NO. OF ELAPSED DAYS: 35
     Dates: start: 20100802

REACTIONS (1)
  - APPENDICITIS PERFORATED [None]
